FAERS Safety Report 8899137 (Version 1)
Quarter: 2012Q4

REPORT INFORMATION
  Report Type: 
  Country: US (occurrence: US)
  Receive Date: 20121109
  Receipt Date: 20121109
  Transmission Date: 20130627
  Serious: No
  Sender: FDA-Public Use
  Company Number: US-B.I. PHARMACEUTICALS,INC./RIDGEFIELD-2012-BP-27320BP

PATIENT
  Sex: Female
  Weight: 103 kg

DRUGS (16)
  1. PRADAXA [Suspect]
     Indication: ATRIAL FIBRILLATION
     Dosage: 300 mg
     Route: 048
     Dates: start: 201106
  2. SPIRIVA [Suspect]
     Indication: CHRONIC OBSTRUCTIVE PULMONARY DISEASE
     Dosage: 18 mcg
     Route: 055
     Dates: start: 2006
  3. POTASSIUM CHLORIDE [Concomitant]
     Indication: SUPPLEMENTATION THERAPY
     Dosage: 40 mEq
     Route: 048
     Dates: start: 2004
  4. SIMVASTATIN [Concomitant]
     Indication: BLOOD CHOLESTEROL INCREASED
     Dosage: 10 mg
     Route: 048
     Dates: start: 201106
  5. MAGNESIUM OXIDE [Concomitant]
     Indication: SUPPLEMENTATION THERAPY
     Dosage: 1600 mg
     Route: 048
     Dates: start: 2004
  6. CITALOPRAM [Concomitant]
     Indication: DEPRESSION
     Dosage: 40 mg
     Route: 048
     Dates: start: 2009
  7. SYMBICORT [Concomitant]
     Indication: CHRONIC OBSTRUCTIVE PULMONARY DISEASE
     Dosage: 2 puf
     Route: 055
     Dates: start: 2006
  8. FLUTICASONE [Concomitant]
     Indication: PROPHYLAXIS
     Route: 045
     Dates: start: 201104
  9. OMEPRAZOLE [Concomitant]
     Indication: HIATUS HERNIA
     Dosage: 80 mg
     Route: 048
     Dates: start: 201104
  10. FLECAINIDE [Concomitant]
     Indication: ATRIAL FIBRILLATION
     Dosage: 100 mg
     Route: 048
     Dates: start: 201106
  11. PRO AIR [Concomitant]
     Indication: INHALATION THERAPY
     Route: 055
     Dates: start: 2006
  12. AZELASTINE  10 % [Concomitant]
     Indication: CHRONIC OBSTRUCTIVE PULMONARY DISEASE
     Route: 055
     Dates: start: 2010
  13. METOPROLOL ER [Concomitant]
     Indication: CARDIAC DISORDER
     Dosage: 100 mg
     Route: 048
     Dates: start: 2006
  14. LEVOTHYROXINE [Concomitant]
     Indication: GOITRE
     Dosage: 50 mcg
     Route: 048
     Dates: start: 2002
  15. METOLAZONE [Concomitant]
     Indication: OEDEMA
     Dosage: 10 mg
     Route: 048
     Dates: start: 2004
  16. OXYGEN [Concomitant]
     Indication: CHRONIC OBSTRUCTIVE PULMONARY DISEASE

REACTIONS (1)
  - Skin discolouration [Not Recovered/Not Resolved]
